FAERS Safety Report 12380874 (Version 4)
Quarter: 2017Q3

REPORT INFORMATION
  Report Type: Report from Study
  Country: TW (occurrence: TW)
  Receive Date: 20160518
  Receipt Date: 20170717
  Transmission Date: 20171127
  Serious: Yes (Hospitalization)
  Sender: FDA-Public Use
  Company Number: TW-ROCHE-1759724

PATIENT
  Age: 74 Year
  Sex: Male
  Weight: 62.7 kg

DRUGS (11)
  1. PARAMOL (TAIWAN) [Concomitant]
     Indication: PROPHYLAXIS
     Route: 065
     Dates: start: 20160330, end: 20160331
  2. CADUET [Concomitant]
     Active Substance: AMLODIPINE BESYLATE\ATORVASTATIN CALCIUM
     Indication: ARTERIOSCLEROSIS CORONARY ARTERY
     Route: 065
     Dates: start: 20150715, end: 20160823
  3. BOKEY [Concomitant]
     Indication: ARTERIOSCLEROSIS CORONARY ARTERY
     Route: 065
     Dates: start: 20141209, end: 20160823
  4. FLORONE [Concomitant]
     Active Substance: DIFLORASONE DIACETATE
     Indication: BLEPHARITIS
     Route: 065
     Dates: start: 20160205, end: 20160419
  5. PRED FORT [Concomitant]
     Active Substance: PREDNISOLONE ACETATE
     Indication: PROPHYLAXIS
     Route: 065
     Dates: start: 20160330, end: 20160402
  6. PROPRANOLOL [Concomitant]
     Active Substance: PROPRANOLOL HYDROCHLORIDE
     Indication: ARTERIOSCLEROSIS CORONARY ARTERY
     Route: 065
     Dates: start: 20160310, end: 20160726
  7. SIGMART [Concomitant]
     Active Substance: NICORANDIL
     Indication: ARTERIOSCLEROSIS CORONARY ARTERY
     Route: 065
     Dates: start: 20161018, end: 20161118
  8. RANIBIZUMAB. [Suspect]
     Active Substance: RANIBIZUMAB
     Indication: AGE-RELATED MACULAR DEGENERATION
     Route: 050
     Dates: start: 20160330, end: 20160330
  9. CHLORAMPHENICOL [Concomitant]
     Active Substance: CHLORAMPHENICOL
     Indication: PROPHYLAXIS
     Route: 065
     Dates: start: 20160330, end: 20160402
  10. GASTER (TAIWAN) [Concomitant]
     Indication: PROPHYLAXIS
     Route: 065
     Dates: start: 20150120, end: 20160823
  11. NEOSTIGMINE METHYLSULFATE. [Concomitant]
     Active Substance: NEOSTIGMINE METHYLSULFATE
     Indication: DRY EYE
     Route: 065
     Dates: start: 20160205, end: 20160419

REACTIONS (2)
  - Abdominal pain upper [Unknown]
  - Coronary artery disease [Recovered/Resolved]

NARRATIVE: CASE EVENT DATE: 20160414
